FAERS Safety Report 14893333 (Version 1)
Quarter: 2018Q2

REPORT INFORMATION
  Report Type: Spontaneous
  Country: US (occurrence: US)
  Receive Date: 20180514
  Receipt Date: 20180514
  Transmission Date: 20180711
  Serious: No
  Sender: FDA-Public Use
  Company Number: US-ARBOR PHARMACEUTICALS, LLC-US-2018ARB000486

PATIENT

DRUGS (1)
  1. CETYLEV [Suspect]
     Active Substance: ACETYLCYSTEINE
     Indication: PROPHYLAXIS
     Dosage: N/A

REACTIONS (1)
  - Product prescribing issue [Unknown]
